FAERS Safety Report 4438356-6 (Version None)
Quarter: 2004Q3

REPORT INFORMATION
  Report Type: 
  Country: None (occurrence: None)
  Receive Date: 20040831
  Receipt Date: 20040726
  Transmission Date: 20050211
  Serious: No
  Sender: FDA-Public Use
  Company Number: US-GLAXOSMITHKLINE-A0519728A

PATIENT
  Age: 47 Year
  Sex: Female

DRUGS (2)
  1. WELLBUTRIN XL [Suspect]
     Indication: DEPRESSION
     Dosage: 300MG PER DAY
     Route: 048
     Dates: start: 20031223, end: 20040301
  2. BIRTH CONTROL [Concomitant]
     Indication: CONTRACEPTION
     Route: 048
     Dates: end: 20040301

REACTIONS (1)
  - BLOOD PRESSURE INCREASED [None]
